APPROVED DRUG PRODUCT: MYCAMINE
Active Ingredient: MICAFUNGIN SODIUM
Strength: EQ 100MG BASE/VIAL
Dosage Form/Route: INJECTABLE;INTRAVENOUS
Application: N021506 | Product #003
Applicant: ASTELLAS PHARMA US INC
Approved: Jun 27, 2006 | RLD: Yes | RS: No | Type: DISCN